FAERS Safety Report 8845497 (Version 1)
Quarter: 2012Q4

REPORT INFORMATION
  Report Type: 
  Country: US (occurrence: US)
  Receive Date: 20121017
  Receipt Date: 20121017
  Transmission Date: 20130627
  Serious: No
  Sender: FDA-Public Use
  Company Number: US-PFIZER INC-2012257171

PATIENT
  Age: 9 Year
  Sex: Female
  Weight: 31.7 kg

DRUGS (3)
  1. CHILDRENS ADVIL [Suspect]
     Indication: HEADACHE
     Dosage: UNK, single
     Dates: start: 201110, end: 201110
  2. CHILDRENS ADVIL [Suspect]
     Dosage: UNK, single
     Dates: start: 20121008, end: 20121008
  3. BENADRYL [Suspect]
     Indication: RASH
     Dosage: 37.5 mg, single
     Dates: start: 20121014, end: 20121014

REACTIONS (2)
  - Rash [Not Recovered/Not Resolved]
  - Drug ineffective [Unknown]
